FAERS Safety Report 7562236-0 (Version None)
Quarter: 2011Q2

REPORT INFORMATION
  Report Type: 
  Country: None (occurrence: None)
  Receive Date: 20110620
  Receipt Date: 20110620
  Transmission Date: 20111010
  Serious: Yes (Other)
  Sender: FDA-Public Use
  Company Number: None

PATIENT
  Age: 79 Year
  Sex: Male
  Weight: 69.4003 kg

DRUGS (1)
  1. AMIODARONE HYDROCHLORIDE [Suspect]
     Indication: ARRHYTHMIA
     Dosage: 200 MG DAILY PO
     Route: 048
     Dates: start: 20100905, end: 20110115

REACTIONS (7)
  - INTESTINAL OBSTRUCTION [None]
  - MUSCLE SPASMS [None]
  - HAEMORRHOIDS [None]
  - DECREASED APPETITE [None]
  - LUNG DISORDER [None]
  - TREMOR [None]
  - FATIGUE [None]
